FAERS Safety Report 10190324 (Version 1)
Quarter: 2014Q2

REPORT INFORMATION
  Report Type: Spontaneous
  Country: CA (occurrence: CA)
  Receive Date: 20140522
  Receipt Date: 20140522
  Transmission Date: 20141212
  Serious: Yes (Other)
  Sender: FDA-Public Use
  Company Number: CA-009507513-1405CAN007658

PATIENT
  Age: 57 Year
  Sex: Male

DRUGS (4)
  1. VICTRELIS [Suspect]
     Route: 065
  2. RIBAVIRIN [Suspect]
     Route: 065
  3. PEGASYS [Suspect]
     Route: 058
  4. CITALOPRAM [Concomitant]
     Route: 065

REACTIONS (1)
  - Pneumonia [Unknown]
